FAERS Safety Report 7897529-0 (Version None)
Quarter: 2011Q4

REPORT INFORMATION
  Report Type: 
  Country: None (occurrence: None)
  Receive Date: 20111107
  Receipt Date: 20111028
  Transmission Date: 20120403
  Serious: Yes (Hospitalization)
  Sender: FDA-Public Use
  Company Number: DE-MILLENNIUM PHARMACEUTICALS, INC.-2011-05185

PATIENT

DRUGS (2)
  1. VELCADE [Suspect]
     Indication: AMYLOIDOSIS
     Dosage: 1 MG/M2, UNK
     Route: 042
     Dates: start: 20110301, end: 20110801
  2. LENALIDOMIDE [Suspect]
     Indication: AMYLOIDOSIS
     Dosage: 15 MG, UNK
     Route: 048
     Dates: start: 20110926, end: 20111016

REACTIONS (1)
  - THYROID DISORDER [None]
